FAERS Safety Report 6160140-6 (Version None)
Quarter: 2009Q2

REPORT INFORMATION
  Report Type: 
  Country: None (occurrence: None)
  Receive Date: 20090420
  Receipt Date: 20090410
  Transmission Date: 20091009
  Serious: Yes (Hospitalization)
  Sender: FDA-Public Use
  Company Number: A0718982A

PATIENT
  Age: 47 Year
  Sex: Male
  Weight: 127.3 kg

DRUGS (7)
  1. AVANDIA [Suspect]
     Dosage: 4MG PER DAY
     Route: 065
     Dates: start: 20050516, end: 20071008
  2. AVANDAMET [Suspect]
     Dates: start: 20050516, end: 20071008
  3. AVANDARYL [Suspect]
     Dates: start: 20050516, end: 20071008
  4. ATENOLOL [Concomitant]
  5. METFORMIN HCL [Concomitant]
  6. SULAR [Concomitant]
  7. DIOVAN HCT [Concomitant]

REACTIONS (3)
  - CARDIAC FAILURE CONGESTIVE [None]
  - ISCHAEMIC CARDIOMYOPATHY [None]
  - MYOCARDIAL INFARCTION [None]
